FAERS Safety Report 20672176 (Version 1)
Quarter: 2022Q2

REPORT INFORMATION
  Report Type: Spontaneous
  Country: US (occurrence: US)
  Receive Date: 20220405
  Receipt Date: 20220405
  Transmission Date: 20220721
  Serious: No
  Sender: FDA-Public Use
  Company Number: US-GW PHARMA-202203USGW01678

PATIENT
  Sex: Female

DRUGS (1)
  1. EPIDIOLEX [Suspect]
     Active Substance: CANNABIDIOL
     Indication: Epilepsy
     Dosage: 370 MILLIGRAM
     Route: 048
     Dates: start: 202202

REACTIONS (1)
  - Depression [Unknown]

NARRATIVE: CASE EVENT DATE: 20220101
